FAERS Safety Report 10957554 (Version 1)
Quarter: 2015Q1

REPORT INFORMATION
  Report Type: Spontaneous
  Country: US (occurrence: None)
  Receive Date: 20150226
  Receipt Date: 20150226
  Transmission Date: 20150721
  Serious: Yes (Hospitalization, Other)
  Sender: FDA-Public Use
  Company Number: TPA2012A01312

PATIENT
  Age: 70 Year
  Sex: Male
  Weight: 72.58 kg

DRUGS (4)
  1. GLUCOPHAGE METFORMIN HYDROCHLORIDE) [Concomitant]
  2. LANTUS [Concomitant]
     Active Substance: INSULIN GLARGINE
  3. ACTOS [Suspect]
     Active Substance: PIOGLITAZONE HYDROCHLORIDE
     Indication: TYPE 2 DIABETES MELLITUS
     Dates: start: 20060217, end: 20060926
  4. LISPRO INSULIN [Concomitant]
     Active Substance: INSULIN LISPRO

REACTIONS (1)
  - Bladder cancer [None]

NARRATIVE: CASE EVENT DATE: 20081020
